FAERS Safety Report 6087049-0 (Version None)
Quarter: 2009Q1

REPORT INFORMATION
  Report Type: 
  Country: None (occurrence: None)
  Receive Date: 20090217
  Receipt Date: 20080716
  Transmission Date: 20090719
  Serious: Yes (Other)
  Sender: FDA-Public Use
  Company Number: MC200800273

PATIENT
  Age: 67 Year
  Sex: Male
  Weight: 83 kg

DRUGS (4)
  1. ANGIOMAX [Suspect]
     Indication: PERCUTANEOUS CORONARY INTERVENTION
     Dosage: 0.75 MG/KG, BOLUS, INTRAVENOUS; 1.75 MG/KG, HR, INTRAVENOUS
     Route: 040
     Dates: start: 20080611, end: 20080611
  2. ANGIOMAX [Suspect]
     Indication: PERCUTANEOUS CORONARY INTERVENTION
     Dosage: 0.75 MG/KG, BOLUS, INTRAVENOUS; 1.75 MG/KG, HR, INTRAVENOUS
     Route: 040
     Dates: start: 20080611, end: 20080611
  3. LIPITOR [Concomitant]
  4. ASA (ACETYSALICYLIC ACID) [Concomitant]

REACTIONS (1)
  - STENT OCCLUSION [None]
